FAERS Safety Report 9328163 (Version 4)
Quarter: 2015Q1

REPORT INFORMATION
  Report Type: Spontaneous
  Country: US (occurrence: US)
  Receive Date: 20130604
  Receipt Date: 20150119
  Transmission Date: 20150721
  Serious: Yes (Other)
  Sender: FDA-Public Use
  Company Number: US-UCBSA-087116

PATIENT
  Age: 58 Year
  Sex: Female
  Weight: 88 kg

DRUGS (14)
  1. METHOTREXATE [Suspect]
     Active Substance: METHOTREXATE
     Indication: PRODUCT USED FOR UNKNOWN INDICATION
     Dosage: UNKNOWN DOSE
     Route: 048
  2. METFORMIN [Concomitant]
     Active Substance: METFORMIN HYDROCHLORIDE
     Indication: PRODUCT USED FOR UNKNOWN INDICATION
     Dosage: 1000 MG, 2X/DAY (BID)
  3. AMITRIPTYLINE [Concomitant]
     Active Substance: AMITRIPTYLINE
     Indication: PRODUCT USED FOR UNKNOWN INDICATION
     Dosage: 50 MG
  4. CIMZIA [Suspect]
     Active Substance: CERTOLIZUMAB PEGOL
     Dosage: 400 MG, EXP DATE: MAR 2014, 89391 FOR 07/MAR/2013; EXP: JAN 2015, 88736 FOR 25/MAR AND 10/APR
     Dates: start: 20130307, end: 20130410
  5. BENADRYL [Concomitant]
     Active Substance: DIPHENHYDRAMINE HYDROCHLORIDE
     Indication: URTICARIA
     Route: 061
  6. CIMZIA [Suspect]
     Active Substance: CERTOLIZUMAB PEGOL
     Indication: RHEUMATOID ARTHRITIS
     Dosage: UNKNOWN DOSE
     Dates: end: 2012
  7. METAXALONE. [Concomitant]
     Active Substance: METAXALONE
     Indication: MUSCLE RELAXANT THERAPY
     Dosage: UNKNOWN DOSE
  8. CELEBREX [Suspect]
     Active Substance: CELECOXIB
     Indication: RHEUMATOID ARTHRITIS
     Dosage: UNKNOWN DOSE
     Route: 048
  9. LISINOPRIL. [Concomitant]
     Active Substance: LISINOPRIL
     Indication: PRODUCT USED FOR UNKNOWN INDICATION
     Dosage: UNKNOWN DOSE
  10. SULFASALAZINE. [Suspect]
     Active Substance: SULFASALAZINE
     Indication: RHEUMATOID ARTHRITIS
     Dosage: UNKNOWN DOSE
     Route: 048
  11. LANTUS [Concomitant]
     Active Substance: INSULIN GLARGINE
     Indication: DIABETES MELLITUS
     Dosage: UNKNOWN DOSE
  12. HYDROXYCHLOROQUINE [Suspect]
     Active Substance: HYDROXYCHLOROQUINE
     Indication: PRODUCT USED FOR UNKNOWN INDICATION
     Dosage: 200 MG
     Route: 048
  13. ZYRTEC [Concomitant]
     Active Substance: CETIRIZINE HYDROCHLORIDE
     Dosage: UNK UNK, AS NEEDED (PRN)
  14. NOVOLOG [Concomitant]
     Active Substance: INSULIN ASPART
     Indication: DIABETES MELLITUS
     Dosage: UNKNOWN DOSE

REACTIONS (14)
  - Psoriasis [Not Recovered/Not Resolved]
  - Dizziness [Not Recovered/Not Resolved]
  - Skin ulcer [Recovered/Resolved]
  - Pain [Not Recovered/Not Resolved]
  - Pruritus [Recovered/Resolved]
  - Eustachian tube obstruction [Not Recovered/Not Resolved]
  - Dyspepsia [Recovered/Resolved]
  - Drug ineffective [Unknown]
  - Urticaria [Not Recovered/Not Resolved]
  - Hypersensitivity [Recovered/Resolved]
  - Rash [Recovered/Resolved]
  - Dyspnoea [Recovered/Resolved]
  - Nasal congestion [Not Recovered/Not Resolved]
  - Alopecia [Recovered/Resolved]

NARRATIVE: CASE EVENT DATE: 201203
